FAERS Safety Report 5505401-6 (Version None)
Quarter: 2007Q4

REPORT INFORMATION
  Report Type: 
  Country: None (occurrence: None)
  Receive Date: 20071102
  Receipt Date: 20071022
  Transmission Date: 20080405
  Serious: Yes (Hospitalization)
  Sender: FDA-Public Use
  Company Number: JP-MERCK-0710USA04148

PATIENT
  Age: 57 Year
  Sex: Male

DRUGS (4)
  1. ZETIA [Suspect]
     Indication: HYPERCHOLESTEROLAEMIA
     Route: 048
     Dates: start: 20070722, end: 20071001
  2. ASPIRIN [Concomitant]
     Route: 065
     Dates: start: 20070429, end: 20071015
  3. AROTINOLOL HYDROCHLORIDE [Concomitant]
     Route: 065
  4. PILSICAINIDE HYDROCHLORIDE [Concomitant]
     Route: 065

REACTIONS (1)
  - GASTRIC ULCER HAEMORRHAGE [None]
